FAERS Safety Report 6533530-7 (Version None)
Quarter: 2010Q1

REPORT INFORMATION
  Report Type: 
  Country: None (occurrence: None)
  Receive Date: 20100111
  Receipt Date: 20100106
  Transmission Date: 20100710
  Serious: Yes (Death, Hospitalization, Other)
  Sender: FDA-Public Use
  Company Number: US-JNJFOC-20100102787

PATIENT
  Sex: Female

DRUGS (26)
  1. LEVAQUIN [Suspect]
     Indication: DRUG USE FOR UNKNOWN INDICATION
     Route: 065
  2. REVLIMID [Suspect]
     Indication: AMYLOIDOSIS
     Route: 048
  3. REVLIMID [Suspect]
     Dosage: 21 DAYS
     Route: 048
  4. REVLIMID [Suspect]
     Dosage: 28 DAYS
     Route: 048
  5. REVLIMID [Suspect]
     Indication: MULTIPLE MYELOMA
     Route: 048
  6. REVLIMID [Suspect]
     Dosage: 21 DAYS
     Route: 048
  7. REVLIMID [Suspect]
     Dosage: 28 DAYS
     Route: 048
  8. VYTORIN [Concomitant]
     Route: 065
  9. FOLIC ACID [Concomitant]
     Route: 065
  10. LEVOTHYROXINE SODIUM [Concomitant]
     Route: 065
  11. VALTREX [Concomitant]
     Route: 065
  12. DEXAMETHASONE TAB [Concomitant]
     Route: 065
  13. NITROL [Concomitant]
     Route: 065
  14. METAMUCIL [Concomitant]
     Route: 065
  15. TORSEMIDE [Concomitant]
     Route: 065
  16. ALTACE [Concomitant]
     Route: 065
  17. CLOBETASOL PROPIONATE [Concomitant]
     Route: 065
  18. CARAFATE [Concomitant]
     Route: 065
  19. VITAMIN B COMPLEX CAP [Concomitant]
     Route: 065
  20. FISH OIL [Concomitant]
     Route: 065
  21. ALLOPURINOL [Concomitant]
     Route: 065
  22. MECLIZINE [Concomitant]
     Route: 065
  23. BAYER ASA [Concomitant]
     Route: 065
  24. HYDROCODONE BITARTRATE AND ACETAMINOPHEN [Concomitant]
     Route: 065
  25. PROTONIX [Concomitant]
     Route: 065
  26. STOOL SOFTENER [Concomitant]
     Route: 065

REACTIONS (10)
  - AORTIC VALVE INCOMPETENCE [None]
  - BLOOD ALKALINE PHOSPHATASE INCREASED [None]
  - BLOOD SODIUM DECREASED [None]
  - CARDIAC FAILURE CONGESTIVE [None]
  - CELLULITIS [None]
  - HAEMOGLOBIN DECREASED [None]
  - MITRAL VALVE INCOMPETENCE [None]
  - PULMONARY HYPERTENSION [None]
  - TRICUSPID VALVE INCOMPETENCE [None]
  - TUBULOINTERSTITIAL NEPHRITIS [None]
